FAERS Safety Report 7575057-X (Version None)
Quarter: 2011Q2

REPORT INFORMATION
  Report Type: 
  Country: None (occurrence: None)
  Receive Date: 20110627
  Receipt Date: 20110523
  Transmission Date: 20111010
  Serious: Yes (Hospitalization)
  Sender: FDA-Public Use
  Company Number: US-BAYER-201010699NA

PATIENT
  Age: 18 Year
  Sex: Female
  Weight: 77 kg

DRUGS (31)
  1. GUAIFENESIN AND PSEUDOEPHEDRINE HYDROCHLORIDE [Concomitant]
  2. KETOROLAC TROMETHAMINE [Concomitant]
  3. TYLENOL W/ CODEINE [Concomitant]
  4. CLARINEX [Concomitant]
  5. LIDOCAINE HCL VISCOUS [Concomitant]
  6. FAMOTIDINE [Concomitant]
  7. PROAIR HFA [Concomitant]
  8. PROPOXYPHENE NAPSYLATE W/PARACETAMOL [Concomitant]
  9. YAZ [Suspect]
     Indication: PREMENSTRUAL SYNDROME
     Route: 048
     Dates: start: 20060701, end: 20091101
  10. ADVAIR DISKUS 100/50 [Concomitant]
  11. YASMIN [Suspect]
     Indication: PRODUCT USED FOR UNKNOWN INDICATION
     Route: 048
     Dates: start: 20060601
  12. VICODIN [Concomitant]
  13. COUGH AND COLD PREPARATIONS [Concomitant]
  14. GUAIFENESIN/PSEUDOEPHEDRINE [GUAIFENESIN,PSEUDOEPHEDRINE HYDROCHLORIDE [Concomitant]
  15. YAZ [Suspect]
     Indication: MENSTRUATION IRREGULAR
  16. CELEBREX [Concomitant]
  17. PREDNISONE [Concomitant]
  18. CEPHALEXIN PANTOPRAZOLE [Concomitant]
  19. SINGULAIR [Concomitant]
  20. IBUPROFEN [Concomitant]
  21. PROAIR HFA [Concomitant]
  22. DIURETICS [Concomitant]
  23. HYDROCODONE [Concomitant]
  24. ALBUTEROL SULFATE AUTOHALER [Concomitant]
  25. PROPOXYPHENE NAPSYLATE W/PARACETAMOL [Concomitant]
  26. AMOXICILLIN [Concomitant]
  27. PANTOPRAZOLE [Concomitant]
  28. YAZ [Suspect]
     Indication: ORAL CONTRACEPTION
  29. AZITHROMYCIN [Concomitant]
  30. ONDANSETRON [Concomitant]
  31. RESPIRATORY SYSTEM [Concomitant]

REACTIONS (5)
  - ABDOMINAL PAIN UPPER [None]
  - VOMITING [None]
  - ANXIETY [None]
  - CHOLECYSTITIS CHRONIC [None]
  - NAUSEA [None]
